FAERS Safety Report 10785001 (Version 1)
Quarter: 2015Q1

REPORT INFORMATION
  Report Type: Spontaneous
  Country: GB (occurrence: None)
  Receive Date: 20150209
  Receipt Date: 20150209
  Transmission Date: 20150721
  Serious: Yes (Hospitalization, Other)
  Sender: FDA-Public Use
  Company Number: GB-ALKEM-000839

PATIENT
  Sex: Female

DRUGS (2)
  1. QUETIAPINE [Suspect]
     Active Substance: QUETIAPINE
     Indication: PRODUCT USED FOR UNKNOWN INDICATION
  2. ARIPIPRAZOLE. [Suspect]
     Active Substance: ARIPIPRAZOLE
     Indication: SCHIZOPHRENIA
     Dosage: 1.00000000-DOSAGE-1.00 TIMES PER-1.0DAYS
     Route: 048
     Dates: start: 20140626, end: 20140716

REACTIONS (10)
  - Anxiety [None]
  - Social phobia [None]
  - Pain [None]
  - Haemorrhage [None]
  - Suspiciousness [None]
  - Migraine [None]
  - Drug withdrawal syndrome [None]
  - Muscle tightness [None]
  - Meningitis [None]
  - Depressed mood [None]

NARRATIVE: CASE EVENT DATE: 20140713
